FAERS Safety Report 11125220 (Version 1)
Quarter: 2015Q2

REPORT INFORMATION
  Report Type: Report from Study
  Country: US (occurrence: US)
  Receive Date: 20150520
  Receipt Date: 20150520
  Transmission Date: 20150821
  Serious: Yes (Other)
  Sender: FDA-Public Use
  Company Number: PHEH2015US009136

PATIENT

DRUGS (1)
  1. NEORAL [Suspect]
     Active Substance: CYCLOSPORINE
     Indication: RENAL TRANSPLANT
     Dosage: 100 MG, BID (TAKE 2 CAPSULES BY MOUTH TWICE DAILY)
     Route: 048

REACTIONS (2)
  - Bradycardia [Unknown]
  - Atrioventricular block [Unknown]
